FAERS Safety Report 6181942-6 (Version None)
Quarter: 2009Q2

REPORT INFORMATION
  Report Type: 
  Country: None (occurrence: None)
  Receive Date: 20090505
  Receipt Date: 20090403
  Transmission Date: 20091009
  Serious: Yes (Other)
  Sender: FDA-Public Use
  Company Number: CERZ-1000526

PATIENT
  Age: 63 Year
  Sex: Male
  Weight: 80 kg

DRUGS (7)
  1. CEREZYME [Suspect]
     Indication: GAUCHER'S DISEASE
     Dosage: 4800 U, Q2W, INTRAVENOUS
     Route: 042
  2. FOLIC ACID [Concomitant]
  3. COUMADIN [Concomitant]
  4. PAXIL [Concomitant]
  5. DILAUDID (HYDROBROMORPHONE HYDROCHLORIDE) [Concomitant]
  6. VANCOMYCIN HYDROCHLORIDE [Concomitant]
  7. STOOL SOFTNER (STOOL SOFTNER) [Concomitant]

REACTIONS (1)
  - ARTHROPATHY [None]
